FAERS Safety Report 5883744-4 (Version None)
Quarter: 2008Q3

REPORT INFORMATION
  Report Type: 
  Country: None (occurrence: None)
  Receive Date: 20080912
  Receipt Date: 20080912
  Transmission Date: 20090109
  Serious: No
  Sender: FDA-Public Use
  Company Number: None

PATIENT
  Age: 61 Year
  Sex: Male

DRUGS (1)
  1. TECHNETIUM,TC-99M [Suspect]
     Indication: CARDIAC STRESS TEST
     Dosage: 15 + LASTER 30MCU ONCE IV
     Route: 042
     Dates: start: 20080415, end: 20080415

REACTIONS (6)
  - ERYTHEMA [None]
  - EYE SWELLING [None]
  - PERIORBITAL OEDEMA [None]
  - PRURITUS [None]
  - RASH [None]
  - RASH PAPULAR [None]
